FAERS Safety Report 7541076-2 (Version None)
Quarter: 2011Q2

REPORT INFORMATION
  Report Type: 
  Country: None (occurrence: None)
  Receive Date: 20110610
  Receipt Date: 20110601
  Transmission Date: 20111010
  Serious: Yes (Other)
  Sender: FDA-Public Use
  Company Number: BR-ROCHE-780416

PATIENT
  Sex: Female

DRUGS (5)
  1. CALCIUM CARBONATE [Concomitant]
     Indication: OSTEOPENIA
     Dosage: FREQUENCY: DAILY
     Route: 048
     Dates: start: 20070101
  2. PEGINTERFERON ALFA-2A [Suspect]
     Indication: HEPATITIS C
     Dosage: DOSE: 180
     Route: 058
     Dates: start: 20080229, end: 20080411
  3. RIBAVIRIN [Suspect]
     Indication: HEPATITIS C
     Dosage: DOSE: 1000, FREQUENCY DAILY
     Route: 050
     Dates: start: 20080229, end: 20080430
  4. EUTHYROX [Concomitant]
     Indication: HYPOTHYROIDISM
     Dosage: FREQUENCY: DAILY
     Route: 048
     Dates: start: 20070101
  5. CLONAZEPAM [Concomitant]
     Indication: DEPRESSION
     Dosage: DOSE: 2.5000 MG/ML, FREQUENCY: DAILY
     Route: 048
     Dates: start: 20070101

REACTIONS (1)
  - BREAST CANCER [None]
